FAERS Safety Report 23046205 (Version 2)
Quarter: 2023Q4

REPORT INFORMATION
  Report Type: Spontaneous
  Country: CZ (occurrence: CZ)
  Receive Date: 20231009
  Receipt Date: 20231204
  Transmission Date: 20240110
  Serious: Yes (Hospitalization, Other)
  Sender: FDA-Public Use
  Company Number: CZ-PFIZER INC-PV202300156367

PATIENT
  Age: 2 Year
  Sex: Female
  Weight: 9 kg

DRUGS (4)
  1. NGENLA [Suspect]
     Active Substance: SOMATROGON-GHLA
     Indication: Hypopituitarism
     Dosage: 5.2 MG, WEEKLY
     Route: 058
     Dates: start: 20230504
  2. SERETIDE [Concomitant]
     Active Substance: FLUTICASONE PROPIONATE\SALMETEROL XINAFOATE
     Dosage: AS NEEDED
     Route: 045
  3. HYDROCORTISONE [Concomitant]
     Active Substance: HYDROCORTISONE
     Dosage: 10 MG
     Route: 048
  4. EUTHYROX [Concomitant]
     Active Substance: LEVOTHYROXINE SODIUM
     Dosage: 6 MG, 2X/DAY

REACTIONS (4)
  - Papilloedema [Recovered/Resolved]
  - Seizure [Recovered/Resolved]
  - Muscle spasms [Unknown]
  - Off label use [Unknown]

NARRATIVE: CASE EVENT DATE: 20230504
